FAERS Safety Report 7632097 (Version 4)
Quarter: 2014Q4

REPORT INFORMATION
  Report Type: Spontaneous
  Country: US (occurrence: US)
  Receive Date: 20101018
  Receipt Date: 20141002
  Transmission Date: 20150529
  Serious: Yes (Other)
  Sender: FDA-Public Use
  Company Number: US-ROCHE-721629

PATIENT
  Age: 15 Year
  Sex: Male
  Weight: 54.4 kg

DRUGS (1)
  1. ACCUTANE [Suspect]
     Active Substance: ISOTRETINOIN
     Indication: ACNE
     Dosage: DOSE REPORTED AS 40/20
     Route: 065
     Dates: start: 19950410, end: 19950906

REACTIONS (10)
  - Stress [Unknown]
  - Attention deficit/hyperactivity disorder [Unknown]
  - Crohn^s disease [Unknown]
  - Rectal polyp [Unknown]
  - Anal fissure [Unknown]
  - Inflammatory bowel disease [Unknown]
  - Epistaxis [Unknown]
  - Lip dry [Unknown]
  - Depression [Unknown]
  - Suicidal ideation [Unknown]

NARRATIVE: CASE EVENT DATE: 19950607
